FAERS Safety Report 10221939 (Version 1)
Quarter: 2014Q2

REPORT INFORMATION
  Report Type: Spontaneous
  Country: US (occurrence: None)
  Receive Date: 20140606
  Receipt Date: 20140606
  Transmission Date: 20141212
  Serious: Yes (Other)
  Sender: FDA-Public Use
  Company Number: None

PATIENT
  Age: 72 Year
  Sex: Female
  Weight: 72.58 kg

DRUGS (1)
  1. ZOLEDRONIC ACID (INJECTABLE) [Suspect]
     Indication: OSTEOPOROSIS PROPHYLAXIS
     Dosage: INJECTION, ONCE PER YEAR
     Dates: start: 20140523, end: 20140523

REACTIONS (4)
  - Arthralgia [None]
  - Abasia [None]
  - Gait disturbance [None]
  - Pain in extremity [None]
